FAERS Safety Report 8830617 (Version 1)
Quarter: 2012Q4

REPORT INFORMATION
  Report Type: Spontaneous
  Country: GB (occurrence: None)
  Receive Date: 20121004
  Receipt Date: 20121004
  Transmission Date: 20130627
  Serious: Yes (Congenital Anomaly)
  Sender: FDA-Public Use
  Company Number: AU-APL-2012-04134

PATIENT
  Age: 1 Day
  Sex: Male
  Weight: 4.09 kg

DRUGS (2)
  1. SERTRALINE (SERTRALINE) (SERTRALINE) [Suspect]
     Indication: OBSESSIVE-COMPULSIVE DISORDER
     Route: 064
  2. SERTRALINE (SERTRALINE) (SERTRALINE) [Suspect]
     Indication: DEPRESSION
     Route: 064

REACTIONS (3)
  - Maternal drugs affecting foetus [None]
  - Coloboma [None]
  - CHARGE syndrome [None]
